FAERS Safety Report 8736651 (Version 2)
Quarter: 2012Q4

REPORT INFORMATION
  Report Type: 
  Country: JP (occurrence: JP)
  Receive Date: 20120822
  Receipt Date: 20120924
  Transmission Date: 20130627
  Serious: Yes (Hospitalization)
  Sender: FDA-Public Use
  Company Number: JP-AMGEN-JPNSP2012051971

PATIENT
  Age: 72 Year
  Sex: Male
  Weight: 66.3 kg

DRUGS (11)
  1. ENBREL [Suspect]
     Indication: PRODUCT USED FOR UNKNOWN INDICATION
     Dosage: 25 mg, 2x/week
     Dates: start: 20110510, end: 20110513
  2. ENBREL [Suspect]
     Dosage: 25 mg, 2x/day
     Dates: start: 20110517, end: 20110721
  3. ENBREL [Suspect]
     Dosage: 25 mg, 2x/day
     Dates: start: 20110810, end: 20120813
  4. PROGRAF [Suspect]
     Indication: RHEUMATOID ARTHRITIS
     Dosage: 2 mg, 1x/day
     Route: 048
     Dates: start: 201009, end: 201010
  5. PROGRAF [Suspect]
     Dosage: 3 mg, 1x/day
     Route: 048
     Dates: start: 201010, end: 20120825
  6. ALLEGRA [Concomitant]
     Indication: ALLERGY PROPHYLAXIS
     Dosage: 60 mg, 2x/day
     Route: 048
  7. BAYASPIRIN [Concomitant]
     Indication: THROMBOSIS PROPHYLAXIS
     Dosage: 100 mg, 1x/day
     Route: 048
  8. MICARDIS [Concomitant]
     Indication: HYPERTENSION
     Dosage: 40 mg, 1x/day
     Route: 048
  9. CONIEL [Concomitant]
     Indication: HYPERTENSION
     Dosage: 4 mg, 1x/day
     Route: 048
  10. ADALAT CR [Concomitant]
     Indication: HYPERTENSION
     Dosage: 20 mg, 1x/day
     Route: 048
  11. MUCOSTA [Concomitant]
     Indication: GASTRITIS
     Dosage: 100 mg, 1x/day
     Route: 048

REACTIONS (2)
  - Interstitial lung disease [Recovering/Resolving]
  - Herpes zoster [Recovered/Resolved]
